FAERS Safety Report 4909177-2 (Version None)
Quarter: 2006Q1

REPORT INFORMATION
  Report Type: 
  Country: None (occurrence: None)
  Receive Date: 20060209
  Receipt Date: 20060209
  Transmission Date: 20060701
  Serious: Yes (Hospitalization)
  Sender: FDA-Public Use
  Company Number: None

PATIENT
  Age: 33 Year
  Sex: Male

DRUGS (18)
  1. CEFEPIME 2 GM [Suspect]
     Indication: LUNG INFECTION PSEUDOMONAL
     Dosage: 2 GM EVERY 12 HOURS IV BOLUS
     Route: 042
     Dates: start: 20040915, end: 20040920
  2. PANCREASE/LIPASE/AMYLASE [Concomitant]
  3. AZITHROMYCIN [Concomitant]
  4. LORATADINE [Concomitant]
  5. OYSTER SHELL CALCIUM [Concomitant]
  6. ADEKS [Concomitant]
  7. LISINOPRIL [Concomitant]
  8. PULMOZYME [Concomitant]
  9. NAPROSYN [Concomitant]
  10. VITAMIN A [Concomitant]
  11. ULTRALENTE INSULIN [Concomitant]
  12. TOBRAMYCIN [Concomitant]
  13. PREDNISONE [Concomitant]
  14. VITAMIN D [Concomitant]
  15. INSULIN LISPRO [Concomitant]
  16. CALCITRIOL [Concomitant]
  17. MONTELUKAST [Concomitant]
  18. OMEPRAZOLE [Concomitant]

REACTIONS (2)
  - NO REACTION ON PREVIOUS EXPOSURE TO DRUG [None]
  - STEVENS-JOHNSON SYNDROME [None]
